FAERS Safety Report 6282277-3 (Version None)
Quarter: 2009Q3

REPORT INFORMATION
  Report Type: 
  Country: None (occurrence: None)
  Receive Date: 20090721
  Receipt Date: 20090721
  Transmission Date: 20100115
  Serious: No
  Sender: FDA-Public Use
  Company Number: None

PATIENT
  Age: 36 Year
  Sex: Male
  Weight: 147.419 kg

DRUGS (1)
  1. WARFARIN SODIUM [Suspect]
     Indication: CEREBROVASCULAR ACCIDENT
     Dosage: 10 MG 2 TAB QD P.O. 5 MG 1/2 TAB Q T, F P.O.
     Route: 048
     Dates: start: 20090129, end: 20090622

REACTIONS (3)
  - INTERNATIONAL NORMALISED RATIO ABNORMAL [None]
  - PRODUCT SUBSTITUTION ISSUE [None]
  - PROTHROMBIN TIME ABNORMAL [None]
